FAERS Safety Report 4831246-6 (Version None)
Quarter: 2005Q4

REPORT INFORMATION
  Report Type: 
  Country: None (occurrence: None)
  Receive Date: 20051118
  Receipt Date: 20051109
  Transmission Date: 20060501
  Serious: Yes (Other)
  Sender: FDA-Public Use
  Company Number: CN-JNJFOC-20051102272

PATIENT
  Age: 50 Year
  Sex: Female

DRUGS (1)
  1. NIZORAL [Suspect]
     Indication: VAGINAL INFECTION
     Route: 048
     Dates: start: 20051103

REACTIONS (4)
  - OEDEMA PERIPHERAL [None]
  - PRURITUS [None]
  - RASH [None]
  - SWELLING FACE [None]
